FAERS Safety Report 23300229 (Version 1)
Quarter: 2023Q4

REPORT INFORMATION
  Report Type: Report from Study
  Country: US (occurrence: US)
  Receive Date: 20231215
  Receipt Date: 20231215
  Transmission Date: 20240110
  Serious: Yes (Hospitalization, Other)
  Sender: FDA-Public Use
  Company Number: US-ABBVIE-5532094

PATIENT
  Sex: Female

DRUGS (1)
  1. HUMIRA [Suspect]
     Active Substance: ADALIMUMAB
     Indication: Crohn^s disease
     Dosage: CITRATE FREE
     Route: 058
     Dates: start: 20230929, end: 20231109

REACTIONS (6)
  - Exploratory operation [Recovering/Resolving]
  - Intra-abdominal fluid collection [Recovering/Resolving]
  - Small intestinal resection [Recovering/Resolving]
  - Abdominal pain [Unknown]
  - Discharge [Recovering/Resolving]
  - Colostomy [Recovering/Resolving]

NARRATIVE: CASE EVENT DATE: 20230101
